FAERS Safety Report 6334455-2 (Version None)
Quarter: 2009Q3

REPORT INFORMATION
  Report Type: 
  Country: None (occurrence: None)
  Receive Date: 20090827
  Receipt Date: 20090821
  Transmission Date: 20100115
  Serious: Yes (Disabling)
  Sender: FDA-Public Use
  Company Number: 359690

PATIENT

DRUGS (1)
  1. BUPIVACAINE HCL [Suspect]
     Indication: ANALGESIA
     Dosage: CONTINUOUS, INJECTION
     Dates: start: 20050601

REACTIONS (4)
  - ANXIETY [None]
  - CHONDROLYSIS [None]
  - JOINT RANGE OF MOTION DECREASED [None]
  - PAIN [None]
